FAERS Safety Report 19094608 (Version 1)
Quarter: 2021Q2

REPORT INFORMATION
  Report Type: Spontaneous
  Country: KW (occurrence: KW)
  Receive Date: 20210405
  Receipt Date: 20210405
  Transmission Date: 20210717
  Serious: No
  Sender: FDA-Public Use
  Company Number: KW-JAZZ-2021-KW-002568

PATIENT
  Age: 15 Year
  Sex: Male
  Weight: 80 kg

DRUGS (4)
  1. SUNOSI [Suspect]
     Active Substance: SOLRIAMFETOL
     Dosage: 75 MILLIGRAM
  2. SUNOSI [Suspect]
     Active Substance: SOLRIAMFETOL
     Dosage: 150 MILLIGRAM
  3. SUNOSI [Suspect]
     Active Substance: SOLRIAMFETOL
     Indication: ATTENTION DEFICIT HYPERACTIVITY DISORDER
     Dosage: 37.5 MILLIGRAM, QD (MORNING)
  4. SUNOSI [Suspect]
     Active Substance: SOLRIAMFETOL
     Dosage: DOSE ADJUSTMENTS

REACTIONS (1)
  - Off label use [Unknown]
